FAERS Safety Report 21296310 (Version 1)
Quarter: 2022Q3

REPORT INFORMATION
  Report Type: Other
  Country: GB (occurrence: GB)
  Receive Date: 20220906
  Receipt Date: 20220906
  Transmission Date: 20221027
  Serious: Yes (Other)
  Sender: FDA-Public Use
  Company Number: None

PATIENT
  Age: 20 Year
  Sex: Female
  Weight: 55 kg

DRUGS (6)
  1. OXYBUTYNIN [Interacting]
     Active Substance: OXYBUTYNIN
     Indication: Hypertonic bladder
     Dosage: 2 DOSAGE FORM; PER DAY; (TAKE 2 TOGETHER DAILY); (MODIFIED-RELEASE TABLET)
     Route: 065
     Dates: start: 20211203
  2. VENLAFAXINE [Interacting]
     Active Substance: VENLAFAXINE HYDROCHLORIDE
     Indication: Depressed mood
     Dosage: 2 DOSAGE FORM, PER DAY (TAKE TWO DAILY)
     Route: 065
     Dates: start: 20220414
  3. AMITRIPTYLINE HYDROCHLORIDE [Concomitant]
     Active Substance: AMITRIPTYLINE HYDROCHLORIDE
     Indication: Product used for unknown indication
     Dosage: UNK, AT BED TIME; (ONE OR TWO TO BE TAKEN AT NIGHT)
     Route: 065
     Dates: start: 20210809
  4. ATORVASTATIN [Concomitant]
     Active Substance: ATORVASTATIN
     Indication: Hypercholesterolaemia
     Dosage: 1 DOSAGE FORM, QD; (ONE TABLET TO BE TAKEN DAILY TO LOWER CHOLESTER...); PER DAY
     Route: 065
     Dates: start: 20211220
  5. DESOGESTREL [Concomitant]
     Active Substance: DESOGESTREL
     Indication: Product used for unknown indication
     Dosage: 1 DOSAGE FORM, QD; (ONE TABLET TO BE TAKEN ONCE A DAY  WITHOUT A BREAK); PER DAY; TABLET (UNCOATED,
     Route: 048
     Dates: start: 20210809
  6. PROCHLORPERAZINE [Concomitant]
     Active Substance: PROCHLORPERAZINE
     Indication: Nausea
     Dosage: UNK, (ONE TABLET MAXIMUM 3 PER DAY FOR NAUSEA. TABLET) (START DATE: 18 JUL 2022 STOP DATE: 31 JUL 20
     Route: 048

REACTIONS (3)
  - Drug interaction [Unknown]
  - Urinary retention [Recovered/Resolved]
  - Condition aggravated [Recovered/Resolved]

NARRATIVE: CASE EVENT DATE: 20220601
